FAERS Safety Report 10703735 (Version 1)
Quarter: 2015Q1

REPORT INFORMATION
  Report Type: Spontaneous
  Country: US (occurrence: US)
  Receive Date: 20150112
  Receipt Date: 20150112
  Transmission Date: 20150721
  Serious: Yes (Death, Other)
  Sender: FDA-Public Use
  Company Number: US-PFIZER INC-2015008480

PATIENT
  Age: 77 Year
  Sex: Female

DRUGS (1)
  1. LIDOCAINE HCL [Suspect]
     Active Substance: LIDOCAINE HYDROCHLORIDE
     Route: 051

REACTIONS (8)
  - Medication error [Fatal]
  - Seizure [Unknown]
  - Unresponsive to stimuli [Fatal]
  - Bradycardia [Unknown]
  - Cardiac arrest [Fatal]
  - Blood pressure abnormal [Unknown]
  - Toxicity to various agents [Fatal]
  - Hyperkalaemia [Unknown]

NARRATIVE: CASE EVENT DATE: 2013
